FAERS Safety Report 4711264-9 (Version None)
Quarter: 2005Q3

REPORT INFORMATION
  Report Type: 
  Country: None (occurrence: None)
  Receive Date: 20050711
  Receipt Date: 20050628
  Transmission Date: 20060218
  Serious: Yes (Life-Threatening, Hospitalization, Other)
  Sender: FDA-Public Use
  Company Number: 05-06-1143

PATIENT
  Age: 64 Year
  Sex: Female
  Weight: 80 kg

DRUGS (5)
  1. METFORMIN [Suspect]
     Indication: DIABETES MELLITUS
     Dosage: 500MG QDS ORAL
     Route: 048
     Dates: start: 19940101
  2. ORLISTAT [Suspect]
     Indication: OBESITY
     Dosage: 120MG TDS ORAL
     Route: 048
     Dates: start: 19990622, end: 19990914
  3. CIMETIDINE [Suspect]
     Indication: ABDOMINAL PAIN UPPER
     Dosage: 400MG BD ORAL
     Route: 048
     Dates: start: 19990814
  4. AMILORIDE HCL AND HYDROCHLOROTHIAZIDE [Concomitant]
  5. ASPIRIN [Concomitant]

REACTIONS (14)
  - ACUTE PRERENAL FAILURE [None]
  - AGITATION [None]
  - CIRCULATORY COLLAPSE [None]
  - DEPRESSED LEVEL OF CONSCIOUSNESS [None]
  - DIARRHOEA [None]
  - DIZZINESS [None]
  - DRUG INTERACTION [None]
  - DYSARTHRIA [None]
  - LACTIC ACIDOSIS [None]
  - MALAISE [None]
  - METABOLIC ACIDOSIS [None]
  - PROTEIN URINE PRESENT [None]
  - RENAL IMPAIRMENT [None]
  - VISION BLURRED [None]
